FAERS Safety Report 8109136 (Version 4)
Quarter: 2013Q4

REPORT INFORMATION
  Report Type: Spontaneous
  Country: US (occurrence: US)
  Receive Date: 20110826
  Receipt Date: 20131126
  Transmission Date: 20140711
  Serious: Yes (Other)
  Sender: FDA-Public Use
  Company Number: US-BAYER-2011-075038

PATIENT
  Age: 28 Year
  Sex: Female
  Weight: 61 kg

DRUGS (10)
  1. YASMIN [Suspect]
     Indication: CONTRACEPTION
  2. YASMIN [Suspect]
     Indication: PREMENSTRUAL SYNDROME
  3. YAZ [Suspect]
     Indication: CONTRACEPTION
  4. YAZ [Suspect]
     Indication: PREMENSTRUAL SYNDROME
  5. INHALER [Concomitant]
     Dosage: UNK
     Dates: start: 2000, end: 2010
  6. PROZAC [Concomitant]
  7. PEPCID [Concomitant]
     Dosage: UNK
     Dates: start: 20090729
  8. PRILOSEC [Concomitant]
     Dosage: UNK
     Dates: start: 20090729
  9. LEVSIN [Concomitant]
     Indication: DISCOMFORT
  10. TORADOL [Concomitant]
     Indication: DISCOMFORT

REACTIONS (4)
  - Gallbladder injury [None]
  - Cholelithiasis [None]
  - Injury [None]
  - Pain [None]
